FAERS Safety Report 7166426-0 (Version None)
Quarter: 2010Q4

REPORT INFORMATION
  Report Type: 
  Country: None (occurrence: None)
  Receive Date: 20101202
  Receipt Date: 20101117
  Transmission Date: 20110411
  Serious: Yes (Death, Hospitalization)
  Sender: FDA-Public Use
  Company Number: 1000017513

PATIENT
  Age: 80 Year
  Sex: Female

DRUGS (10)
  1. ESCITALOPRAM [Suspect]
     Dosage: 10 MG (10 MG,1 IN 1 D),ORAL
     Route: 048
     Dates: end: 20101015
  2. OLFEN (DICLOFENAC) (TABLETS) [Suspect]
     Dosage: 150 MG (75 MG,2 IN 1 D),ORAL
     Route: 048
     Dates: start: 20100101, end: 20100921
  3. ASPIRIN [Suspect]
     Indication: MYOCARDIAL ISCHAEMIA
     Dosage: 100 MG (100 MG,1 IN 1 D),ORAL
     Route: 048
     Dates: end: 20101015
  4. SORTIS (ATORVASTATIN) (TABLETS) (ATORVASTATIN) [Concomitant]
  5. STILNOX (ZOLPIDEM) (TABLETS) (ZOLPIDEM) [Concomitant]
  6. ELTROXIN (LEVOTHYROXINE SODIUM) (TABLETS) (LEVOTHYROXINE SODIUM) [Concomitant]
  7. BELOC ZOK (METOPROLOL SUCCINATE) (TABLETS) (METOPROLOL SUCCINATE) [Concomitant]
  8. RAMIPRIL (RAMIPRIL) (TABLETS) (RAMIPRIL) [Concomitant]
  9. NORVASC (AMLODIPINE BESILATE) (TABLETS) (AMLODIPINE BESILATE) [Concomitant]
  10. TOREM (TORASEMIDE) (TABLETS) (TORASEMIDE) [Concomitant]

REACTIONS (17)
  - ASPARTATE AMINOTRANSFERASE INCREASED [None]
  - ATRIAL FIBRILLATION [None]
  - CANDIDA TEST POSITIVE [None]
  - CARDIAC FAILURE [None]
  - FUNGAL PERITONITIS [None]
  - GASTRIC ULCER HAEMORRHAGE [None]
  - GASTRIC ULCER PERFORATION [None]
  - GASTROINTESTINAL HAEMORRHAGE [None]
  - GENERAL PHYSICAL HEALTH DETERIORATION [None]
  - HAEMORRHAGIC ANAEMIA [None]
  - MELAENA [None]
  - MUSCLE DISORDER [None]
  - MYALGIA [None]
  - PROCALCITONIN INCREASED [None]
  - RENAL FAILURE ACUTE [None]
  - RESPIRATORY FAILURE [None]
  - SEPSIS [None]
